FAERS Safety Report 8746000 (Version 4)
Quarter: 2013Q1

REPORT INFORMATION
  Report Type: Spontaneous
  Country: DE (occurrence: DE)
  Receive Date: 20120827
  Receipt Date: 20130117
  Transmission Date: 20140127
  Serious: Yes (Other)
  Sender: FDA-Public Use
  Company Number: DE-JNJFOC-20120807432

PATIENT
  Age: 28 Year
  Sex: Female

DRUGS (6)
  1. REMICADE [Suspect]
     Indication: CROHN^S DISEASE
     Route: 042
     Dates: start: 20120328
  2. REMICADE [Suspect]
     Indication: CROHN^S DISEASE
     Route: 042
     Dates: start: 201103
  3. REMICADE [Suspect]
     Indication: CROHN^S DISEASE
     Route: 042
     Dates: start: 201206, end: 20120705
  4. REMICADE [Suspect]
     Indication: CROHN^S DISEASE
     Dosage: 3RD INFUSION
     Route: 042
     Dates: start: 201106, end: 201108
  5. IDEOS [Concomitant]
     Indication: PROPHYLAXIS
     Route: 065
  6. PANTOZOL [Concomitant]
     Indication: PROPHYLAXIS
     Route: 065

REACTIONS (4)
  - Arthralgia [Recovered/Resolved]
  - Joint stiffness [Not Recovered/Not Resolved]
  - Joint swelling [Not Recovered/Not Resolved]
  - Drug effect decreased [Unknown]
